FAERS Safety Report 18840126 (Version 2)
Quarter: 2021Q2

REPORT INFORMATION
  Report Type: Spontaneous
  Country: US (occurrence: US)
  Receive Date: 20210204
  Receipt Date: 20210510
  Transmission Date: 20210717
  Serious: No
  Sender: FDA-Public Use
  Company Number: US-AUROBINDO-AUR-APL-2020-056972

PATIENT
  Age: 84 Year
  Sex: Male
  Weight: 87.09 kg

DRUGS (4)
  1. LORATADINE 10 MG TABLETS USP (OTC) [Suspect]
     Active Substance: LORATADINE
     Dosage: 1 DOSAGE FORM, ONCE A DAY
     Route: 065
     Dates: start: 20201210
  2. LORATADINE 10 MG TABLETS USP (OTC) [Suspect]
     Active Substance: LORATADINE
     Dosage: 1.5 DOSAGE FORM, ONCE A DAY
     Route: 065
  3. LORATADINE 10 MG TABLETS USP (OTC) [Suspect]
     Active Substance: LORATADINE
     Indication: RHINORRHOEA
     Dosage: 1 DOSAGE FORM, ONCE A DAY
     Route: 065
     Dates: start: 20201017
  4. LORATADINE 10 MG TABLETS USP (OTC) [Suspect]
     Active Substance: LORATADINE
     Dosage: 2 DOSAGE FORM, ONCE A DAY
     Route: 065

REACTIONS (4)
  - Wrong technique in product usage process [Unknown]
  - Intentional dose omission [Unknown]
  - Extra dose administered [Unknown]
  - Drug ineffective [Unknown]

NARRATIVE: CASE EVENT DATE: 20201017
